FAERS Safety Report 17535045 (Version 9)
Quarter: 2021Q1

REPORT INFORMATION
  Report Type: Report from Study
  Country: NL (occurrence: NL)
  Receive Date: 20200312
  Receipt Date: 20210302
  Transmission Date: 20210419
  Serious: Yes (Hospitalization, Other)
  Sender: FDA-Public Use
  Company Number: NVSC2020NL006517

PATIENT
  Age: 4 Year
  Sex: Female
  Weight: 11.13 kg

DRUGS (4)
  1. TRAMETINIB [Suspect]
     Active Substance: TRAMETINIB
     Dosage: 0.375 MG
     Route: 065
     Dates: start: 20200221
  2. TRAMETINIB [Suspect]
     Active Substance: TRAMETINIB
     Indication: ASTROCYTOMA
     Dosage: 0.375 MG/KG
     Route: 048
     Dates: start: 20191212, end: 20200216
  3. TRAMETINIB [Suspect]
     Active Substance: TRAMETINIB
     Dosage: 0.360 MG
     Route: 048
     Dates: start: 20200615, end: 20201110
  4. TRAMETINIB [Suspect]
     Active Substance: TRAMETINIB
     Dosage: UNK (10 ML 0.05 MG/ML)
     Route: 065
     Dates: start: 20201110

REACTIONS (18)
  - Peripheral swelling [Unknown]
  - Somnolence [Recovered/Resolved]
  - Product administration error [Unknown]
  - Inflammation [Unknown]
  - Inappropriate antidiuretic hormone secretion [Recovered/Resolved]
  - Pain in extremity [Unknown]
  - Somnolence [Not Recovered/Not Resolved]
  - Neoplasm progression [Recovering/Resolving]
  - Eyelash discolouration [Unknown]
  - Transaminases increased [Unknown]
  - Hypothyroidism [Unknown]
  - Erythema [Unknown]
  - Skin infection [Unknown]
  - Skin disorder [Not Recovered/Not Resolved]
  - Skin bacterial infection [Unknown]
  - Hair colour changes [Unknown]
  - Rash [Not Recovered/Not Resolved]
  - Astrocytoma [Unknown]

NARRATIVE: CASE EVENT DATE: 202002
